FAERS Safety Report 10549104 (Version 1)
Quarter: 2014Q4

REPORT INFORMATION
  Report Type: Spontaneous
  Country: US (occurrence: None)
  Receive Date: 20141015
  Receipt Date: 20141015
  Transmission Date: 20150529
  Serious: No
  Sender: FDA-Public Use
  Company Number: 2014US003684

PATIENT
  Age: 65 Year
  Sex: Female

DRUGS (3)
  1. ICLUSIG [Suspect]
     Active Substance: PONATINIB
     Indication: CHRONIC MYELOID LEUKAEMIA
     Route: 048
     Dates: start: 20140711
  2. HYDROXYUREA (HYDROXYUREA) [Concomitant]
  3. ADVIT (IBUPROFEN) [Concomitant]

REACTIONS (1)
  - Rash pruritic [None]
